FAERS Safety Report 8002616-2 (Version None)
Quarter: 2011Q4

REPORT INFORMATION
  Report Type: 
  Country: None (occurrence: None)
  Receive Date: 20111222
  Receipt Date: 20111215
  Transmission Date: 20120403
  Serious: Yes (Hospitalization)
  Sender: FDA-Public Use
  Company Number: JP-GLAXOSMITHKLINE-B0663022A

PATIENT
  Sex: Male

DRUGS (9)
  1. PHENOBARBITAL TAB [Concomitant]
     Indication: EPILEPSY
     Dosage: 210MG PER DAY
     Route: 048
  2. POTASSIUM BROMIDE [Concomitant]
  3. GABAPENTIN [Concomitant]
     Indication: EPILEPSY
     Dosage: 1600MG PER DAY
     Route: 048
  4. ZONISAMIDE [Concomitant]
     Indication: EPILEPSY
     Dosage: 450MG PER DAY
     Route: 048
  5. LAMICTAL [Suspect]
     Indication: EPILEPSY
     Dosage: 25MG ALTERNATE DAYS
     Route: 048
     Dates: start: 20100423, end: 20100507
  6. PHENYTOIN [Concomitant]
  7. LAMICTAL [Suspect]
     Dosage: 25MG PER DAY
     Route: 048
     Dates: start: 20100508, end: 20100521
  8. LAMICTAL [Suspect]
     Dosage: 50MG PER DAY
     Route: 048
     Dates: start: 20100522, end: 20100616
  9. CLONAZEPAM [Concomitant]
     Indication: EPILEPSY
     Dosage: 2MG PER DAY
     Route: 048

REACTIONS (8)
  - DEPRESSED LEVEL OF CONSCIOUSNESS [None]
  - PARTIAL SEIZURES [None]
  - BLEPHAROSPASM [None]
  - INSOMNIA [None]
  - STATUS EPILEPTICUS [None]
  - ABNORMAL BEHAVIOUR [None]
  - CONVULSION [None]
  - TONIC CLONIC MOVEMENTS [None]
